FAERS Safety Report 9850051 (Version 1)
Quarter: 2013Q4

REPORT INFORMATION
  Report Type: Spontaneous
  Country: US (occurrence: None)
  Receive Date: 20131226
  Receipt Date: 20131226
  Transmission Date: 20140711
  Serious: Yes (Other)
  Sender: FDA-Public Use
  Company Number: PHEH2012US011401

PATIENT
  Age: 52 Year
  Sex: Female

DRUGS (4)
  1. AFINITOR (RAD) UNKNOWN [Suspect]
     Indication: CARCINOID TUMOUR
     Dosage: 10 MG, UNK, ORAL
     Route: 048
     Dates: start: 20120411, end: 20120801
  2. LEXAPRO (ESCITALOPRAM OXALATE) [Concomitant]
  3. OXYCODONE (OXYCODONE) [Concomitant]
  4. OCTREOTIDE [Concomitant]

REACTIONS (5)
  - Pneumonia [None]
  - Stomatitis [None]
  - Mucosal inflammation [None]
  - Alopecia [None]
  - Tremor [None]
